FAERS Safety Report 4791101-7 (Version None)
Quarter: 2005Q4

REPORT INFORMATION
  Report Type: 
  Country: None (occurrence: None)
  Receive Date: 20051005
  Receipt Date: 20050915
  Transmission Date: 20060501
  Serious: No
  Sender: FDA-Public Use
  Company Number: DE_050916991

PATIENT
  Age: 39 Year
  Sex: Male

DRUGS (1)
  1. ZYPREXA [Suspect]
     Indication: PSYCHOTIC DISORDER
     Dosage: 20 MG AT BEDTIME
     Dates: start: 20050827, end: 20050912

REACTIONS (4)
  - LEUKOPENIA [None]
  - NEUTROPENIA [None]
  - ORAL CANDIDIASIS [None]
  - PYREXIA [None]
